FAERS Safety Report 22074796 (Version 2)
Quarter: 2023Q2

REPORT INFORMATION
  Report Type: Spontaneous
  Country: US (occurrence: None)
  Receive Date: 20230308
  Receipt Date: 20230412
  Transmission Date: 20230722
  Serious: Yes (Hospitalization)
  Sender: FDA-Public Use
  Company Number: US-ROCHE-3303058

PATIENT
  Sex: Female

DRUGS (23)
  1. ESBRIET [Suspect]
     Active Substance: PIRFENIDONE
     Indication: Interstitial lung disease
     Dosage: TAKE 3 TABLETS BY MOUTH TWICE DAILY
     Route: 048
     Dates: start: 20200804
  2. ACETAMINOPHEN [Concomitant]
     Active Substance: ACETAMINOPHEN
  3. BREO ELLIPTA [Concomitant]
     Active Substance: FLUTICASONE FUROATE\VILANTEROL TRIFENATATE
     Dosage: 100-25
  4. CALCIUM [Concomitant]
     Active Substance: CALCIUM
  5. CALCIUM\VITAMIN D [Concomitant]
     Active Substance: CALCIUM\VITAMIN D
  6. CIPROFLOXACIN [Concomitant]
     Active Substance: CIPROFLOXACIN
  7. DIAZEPAM [Concomitant]
     Active Substance: DIAZEPAM
  8. DICYCLOMINE [Concomitant]
     Active Substance: DICYCLOMINE HYDROCHLORIDE
  9. FAMOTIDINE [Concomitant]
     Active Substance: FAMOTIDINE
  10. FERAHEME [Concomitant]
     Active Substance: FERUMOXYTOL NON-STOICHIOMETRIC MAGNETITE
     Dosage: 510/17ML
  11. FISH OIL [Concomitant]
     Active Substance: FISH OIL
  12. GABAPENTIN [Concomitant]
     Active Substance: GABAPENTIN
  13. INDAPAMIDE [Concomitant]
     Active Substance: INDAPAMIDE
  14. ISOSORBIDE MONONITRATE [Concomitant]
     Active Substance: ISOSORBIDE MONONITRATE
  15. LEVOTHYROXINE [Concomitant]
     Active Substance: LEVOTHYROXINE
     Dosage: 100MCG
  16. MAGNESIUM OXIDE [Concomitant]
     Active Substance: MAGNESIUM OXIDE
  17. METOPROLOL [Concomitant]
     Active Substance: METOPROLOL
  18. NEXIUM [Concomitant]
     Active Substance: ESOMEPRAZOLE MAGNESIUM
  19. ONDANSETRON [Concomitant]
     Active Substance: ONDANSETRON
  20. PEPCID [Concomitant]
     Active Substance: FAMOTIDINE
  21. POTASSIUM CHLORIDE [Concomitant]
     Active Substance: POTASSIUM CHLORIDE
     Dosage: 20 MEQ ER
  22. TESSALON [Concomitant]
     Active Substance: BENZONATATE
  23. REPATHA [Concomitant]
     Active Substance: EVOLOCUMAB
     Dosage: 140MG/ML

REACTIONS (1)
  - COVID-19 [Unknown]
